FAERS Safety Report 4726946-2 (Version None)
Quarter: 2005Q3

REPORT INFORMATION
  Report Type: 
  Country: None (occurrence: None)
  Receive Date: 20050725
  Receipt Date: 20050725
  Transmission Date: 20060218
  Serious: Yes (Hospitalization)
  Sender: FDA-Public Use
  Company Number: None

PATIENT
  Age: 69 Year
  Sex: Male
  Weight: 78.0187 kg

DRUGS (17)
  1. ASPIRIN [Suspect]
     Indication: CORONARY ARTERY DISEASE
     Dosage: 81MG   QD  ORAL
     Route: 048
     Dates: start: 20050425, end: 20050505
  2. CLOPIDOGREL    75MG [Suspect]
     Indication: CORONARY ARTERY DISEASE
     Dosage: 75MG    QD    ORAL
     Route: 048
     Dates: start: 20040425, end: 20050505
  3. DILTIAZEM [Concomitant]
  4. ENALAPRIL MALEATE [Concomitant]
  5. LASIX [Concomitant]
  6. GATIFLOXACIN [Concomitant]
  7. GUAIFENESIN [Concomitant]
  8. INSULIN [Concomitant]
  9. IPRATROPIUM NEBULIZATIONS [Concomitant]
  10. LACTOBACILLUS [Concomitant]
  11. METOLAZONE [Concomitant]
  12. NITROGLYCERIN [Concomitant]
  13. OMEPRAZOLE [Concomitant]
  14. POTASSIUM CHLORIDE [Concomitant]
  15. PREDNISONE [Concomitant]
  16. SIMVASTATIN [Concomitant]
  17. TERAZOSIN [Concomitant]

REACTIONS (3)
  - DEEP VEIN THROMBOSIS [None]
  - HAEMOPTYSIS [None]
  - PLEURITIC PAIN [None]
